FAERS Safety Report 13153768 (Version 1)
Quarter: 2017Q1

REPORT INFORMATION
  Report Type: Spontaneous
  Country: US (occurrence: US)
  Receive Date: 20170126
  Receipt Date: 20170126
  Transmission Date: 20170428
  Serious: No
  Sender: FDA-Public Use
  Company Number: US-BAYER-2017-013947

PATIENT
  Weight: 140 kg

DRUGS (15)
  1. LYRICA [Concomitant]
     Active Substance: PREGABALIN
     Dosage: UNK
     Dates: start: 20150204
  2. ALPHA LIPOIC ACID [Concomitant]
     Active Substance: .ALPHA.-LIPOIC ACID
     Dosage: UNK
  3. OMEGA 3 FISH OIL [Concomitant]
     Active Substance: FISH OIL\OMEGA-3 FATTY ACIDS
     Dosage: UNK
  4. VITAMIN D3 [Concomitant]
     Active Substance: CHOLECALCIFEROL
     Dosage: UNK
  5. CLARITIN [Suspect]
     Active Substance: LORATADINE
     Dosage: UNK
  6. EFFEXOR [Concomitant]
     Active Substance: VENLAFAXINE HYDROCHLORIDE
     Dosage: UNK
  7. CALCIUM CARBONATE. [Concomitant]
     Active Substance: CALCIUM CARBONATE
     Dosage: UNK
  8. ZOLOFT [Concomitant]
     Active Substance: SERTRALINE HYDROCHLORIDE
     Dosage: UNK
  9. MAGNESIUM STEARATE [Concomitant]
     Active Substance: MAGNESIUM STEARATE
     Dosage: UNK
  10. XANAX [Concomitant]
     Active Substance: ALPRAZOLAM
     Dosage: UNK
  11. MULTIVITAMIN AND MINERAL SUPPLEMENT [Concomitant]
     Active Substance: MINERALS\VITAMINS
     Dosage: UNK
  12. ESTER C [Concomitant]
     Dosage: UNK
  13. FLAXSEED [Concomitant]
     Active Substance: FLAX SEED
     Dosage: UNK
  14. NEURONTIN [Concomitant]
     Active Substance: GABAPENTIN
     Dosage: UNK
  15. DETROL LA [Concomitant]
     Active Substance: TOLTERODINE TARTRATE
     Dosage: UNK

REACTIONS (1)
  - Therapeutic response unexpected [None]
